FAERS Safety Report 8890398 (Version 1)
Quarter: 2012Q4

REPORT INFORMATION
  Report Type: Report from Study
  Country: GB (occurrence: GB)
  Receive Date: 20121107
  Receipt Date: 20121107
  Transmission Date: 20130627
  Serious: Yes (Other)
  Sender: FDA-Public Use
  Company Number: PHHO2005GB07866

PATIENT
  Age: 59 Year
  Sex: Male
  Weight: 73.3 kg

DRUGS (1)
  1. FTY 720 [Suspect]
     Indication: RENAL TRANSPLANT
     Dosage: 5  mg, UNK

REACTIONS (2)
  - Basal cell carcinoma [Recovered/Resolved]
  - Squamous cell carcinoma [Unknown]
